FAERS Safety Report 16204588 (Version 1)
Quarter: 2019Q2

REPORT INFORMATION
  Report Type: Spontaneous
  Country: PL (occurrence: PL)
  Receive Date: 20190416
  Receipt Date: 20190416
  Transmission Date: 20190711
  Serious: Yes (Death)
  Sender: FDA-Public Use
  Company Number: PL-009507513-1904POL006559

PATIENT
  Age: 66 Year
  Sex: Female
  Weight: 55 kg

DRUGS (3)
  1. TEMODAL [Suspect]
     Active Substance: TEMOZOLOMIDE
     Indication: BRAIN NEOPLASM MALIGNANT
     Dosage: 15 MILLIGRAM
     Route: 048
     Dates: start: 20160714, end: 20160808
  2. TEMODAL [Suspect]
     Active Substance: TEMOZOLOMIDE
     Dosage: 115 MILLIGRAM
     Route: 048
     Dates: start: 20160809, end: 20160810
  3. TEMODAL [Suspect]
     Active Substance: TEMOZOLOMIDE
     Dosage: 100 MILLIGRAM
     Route: 048
     Dates: start: 20160714, end: 20160808

REACTIONS (1)
  - Pancytopenia [Fatal]

NARRATIVE: CASE EVENT DATE: 20160810
